FAERS Safety Report 7732476-6 (Version None)
Quarter: 2011Q3

REPORT INFORMATION
  Report Type: 
  Country: None (occurrence: None)
  Receive Date: 20110906
  Receipt Date: 20110823
  Transmission Date: 20111222
  Serious: Yes (Hospitalization)
  Sender: FDA-Public Use
  Company Number: US-ELI_LILLY_AND_COMPANY-US201108007959

PATIENT
  Sex: Female

DRUGS (4)
  1. LORAZEPAM [Concomitant]
     Indication: MOOD SWINGS
     Dosage: 7.5 MG, UNK
  2. SEROQUEL [Concomitant]
     Dosage: 1000 MG, UNK
  3. CYMBALTA [Suspect]
     Indication: MUSCULOSKELETAL PAIN
     Dosage: 90 MG, QD
  4. SEROQUEL [Concomitant]
     Dosage: 200 MG, UNK

REACTIONS (3)
  - LOSS OF CONSCIOUSNESS [None]
  - ANKLE OPERATION [None]
  - DIARRHOEA [None]
